FAERS Safety Report 8263702-5 (Version None)
Quarter: 2012Q2

REPORT INFORMATION
  Report Type: 
  Country: None (occurrence: None)
  Receive Date: 20120405
  Receipt Date: 20120323
  Transmission Date: 20120825
  Serious: Yes (Death)
  Sender: FDA-Public Use
  Company Number: FR-ROCHE-1052431

PATIENT
  Sex: Female

DRUGS (2)
  1. AVASTIN [Suspect]
     Indication: RENAL CANCER METASTATIC
     Route: 042
     Dates: start: 20110728, end: 20111229
  2. ROFERON-A [Suspect]
     Indication: RENAL CANCER METASTATIC
     Route: 058
     Dates: start: 20110713

REACTIONS (2)
  - RENAL FAILURE [None]
  - PROTEINURIA [None]
